FAERS Safety Report 15749863 (Version 3)
Quarter: 2019Q3

REPORT INFORMATION
  Report Type: Report from Study
  Country: None (occurrence: IT)
  Receive Date: 20181221
  Receipt Date: 20190930
  Transmission Date: 20191004
  Serious: Yes (Hospitalization, Other)
  Sender: FDA-Public Use
  Company Number: IT-ABBVIE-18S-083-2599140-00

PATIENT
  Age: 61 Year
  Sex: Male

DRUGS (1)
  1. DUODOPA [Suspect]
     Active Substance: CARBIDOPA\LEVODOPA
     Indication: PARKINSON^S DISEASE
     Dosage: MD: 4,5+3 CR: 3,1 ED: 2
     Route: 050
     Dates: start: 20161102

REACTIONS (4)
  - Decubitus ulcer [Unknown]
  - Hydronephrosis [Not Recovered/Not Resolved]
  - Bladder neoplasm [Recovered/Resolved]
  - Infection [Unknown]

NARRATIVE: CASE EVENT DATE: 201812
